FAERS Safety Report 8206906-X (Version None)
Quarter: 2012Q1

REPORT INFORMATION
  Report Type: 
  Country: None (occurrence: None)
  Receive Date: 20120312
  Receipt Date: 20110624
  Transmission Date: 20120608
  Serious: Yes (Hospitalization, Other)
  Sender: FDA-Public Use
  Company Number: NL-023057

PATIENT
  Age: 68 Year
  Sex: Male

DRUGS (5)
  1. NIFEDIPINE [Concomitant]
  2. (CHLORAMBUCIL) [Suspect]
     Indication: CHRONIC LYMPHOCYTIC LEUKAEMIA
     Dosage: 60 MG QD, 6 MG QD
     Dates: start: 20110314
  3. (CHLORAMBUCIL) [Suspect]
     Indication: CHRONIC LYMPHOCYTIC LEUKAEMIA
     Dosage: 60 MG QD, 6 MG QD
     Dates: start: 20110623
  4. METFORMIN HYDROCHLORIDE [Concomitant]
  5. ALLOPURINOL [Concomitant]

REACTIONS (7)
  - DYSPNOEA [None]
  - ASPERGILLOSIS [None]
  - FEBRILE NEUTROPENIA [None]
  - THROMBOCYTOPENIA [None]
  - LOWER RESPIRATORY TRACT INFECTION [None]
  - COUGH [None]
  - HAEMOGLOBIN DECREASED [None]
